FAERS Safety Report 20170725 (Version 1)
Quarter: 2021Q4

REPORT INFORMATION
  Report Type: Spontaneous
  Country: US (occurrence: US)
  Receive Date: 20211210
  Receipt Date: 20211210
  Transmission Date: 20220303
  Serious: No
  Sender: FDA-Public Use
  Company Number: US-GLAXOSMITHKLINE-US2021247286

PATIENT
  Age: 80 Year
  Sex: Female

DRUGS (2)
  1. NUCALA [Suspect]
     Active Substance: MEPOLIZUMAB
     Indication: Product used for unknown indication
     Dosage: UNK
     Dates: start: 202110, end: 202110
  2. DEVICE [Suspect]
     Active Substance: DEVICE
     Indication: Asthma
     Dosage: 100 MG , LYO VIAL ONLY ONE DOSE WAS EVER
     Dates: start: 202110, end: 202110

REACTIONS (1)
  - Arthralgia [Not Recovered/Not Resolved]

NARRATIVE: CASE EVENT DATE: 20211001
